FAERS Safety Report 4718731-2 (Version None)
Quarter: 2005Q3

REPORT INFORMATION
  Report Type: 
  Country: None (occurrence: None)
  Receive Date: 20050719
  Receipt Date: 20050705
  Transmission Date: 20060218
  Serious: Yes (Hospitalization, Other)
  Sender: FDA-Public Use
  Company Number: 2005100085

PATIENT
  Age: 72 Year
  Sex: Male

DRUGS (9)
  1. CELEBREX [Suspect]
     Indication: ILL-DEFINED DISORDER
     Dosage: (200 MG,)
     Dates: start: 20010618
  2. WARFARIN SODIUM [Concomitant]
  3. ACIPHEX [Concomitant]
  4. PSYLLIUM HYDROPHILIC MUCILLOID (PSYLLIUM HYDROPHILIC MUCILLOID) [Concomitant]
  5. IMDUR [Concomitant]
  6. PLAVIX [Concomitant]
  7. ASPIRIN [Concomitant]
  8. TOPROL-XL [Concomitant]
  9. PRINIVIL [Concomitant]

REACTIONS (20)
  - ARTERIAL BRUIT [None]
  - BLOOD CALCIUM DECREASED [None]
  - BLOOD PRESSURE FLUCTUATION [None]
  - BRADYCARDIA [None]
  - CARDIAC MURMUR [None]
  - CORONARY ARTERY OCCLUSION [None]
  - CORONARY ARTERY STENOSIS [None]
  - DYSPEPSIA [None]
  - DYSPNOEA [None]
  - HEADACHE [None]
  - HYPERLIPIDAEMIA [None]
  - INJURY [None]
  - ISCHAEMIA [None]
  - MYOCARDIAL INFARCTION [None]
  - PROCEDURAL COMPLICATION [None]
  - PROCEDURAL HYPERTENSION [None]
  - PROTHROMBIN TIME PROLONGED [None]
  - RED BLOOD CELL COUNT DECREASED [None]
  - SINUS BRADYCARDIA [None]
  - VENTRICULAR TACHYCARDIA [None]
